FAERS Safety Report 24440304 (Version 2)
Quarter: 2025Q3

REPORT INFORMATION
  Report Type: Report from Study
  Country: EU (occurrence: EU)
  Receive Date: 20241016
  Receipt Date: 20250805
  Transmission Date: 20251021
  Serious: Yes (Other)
  Sender: GLAXOSMITHKLINE
  Company Number: None

PATIENT

DRUGS (6)
  1. LAMOTRIGINE [Suspect]
     Active Substance: LAMOTRIGINE
     Indication: Epilepsy
  2. LAMOTRIGINE [Suspect]
     Active Substance: LAMOTRIGINE
     Indication: Mental disorder
  3. LAMOTRIGINE [Suspect]
     Active Substance: LAMOTRIGINE
  4. LAMOTRIGINE [Suspect]
     Active Substance: LAMOTRIGINE
  5. LAMOTRIGINE [Suspect]
     Active Substance: LAMOTRIGINE
  6. LAMOTRIGINE [Suspect]
     Active Substance: LAMOTRIGINE

REACTIONS (3)
  - Growth retardation [Recovered/Resolved]
  - Exposure via breast milk [Unknown]
  - Foetal exposure during pregnancy [Unknown]
